FAERS Safety Report 14813438 (Version 1)
Quarter: 2018Q2

REPORT INFORMATION
  Report Type: Spontaneous
  Country: LT (occurrence: LT)
  Receive Date: 20180426
  Receipt Date: 20180426
  Transmission Date: 20180711
  Serious: Yes (Hospitalization, Other)
  Sender: FDA-Public Use
  Company Number: LT-REGENERON PHARMACEUTICALS, INC.-2018-21772

PATIENT

DRUGS (3)
  1. EYLEA [Suspect]
     Active Substance: AFLIBERCEPT
     Dosage: 2 MG, LAST INJECTION PRIOR TO EVENT ONSET
     Route: 031
     Dates: start: 20180411, end: 20180411
  2. EYLEA [Suspect]
     Active Substance: AFLIBERCEPT
     Dosage: TOTAL OF 16 INJECTIONS
     Route: 031
     Dates: start: 20150909
  3. EYLEA [Suspect]
     Active Substance: AFLIBERCEPT
     Indication: NEOVASCULAR AGE-RELATED MACULAR DEGENERATION
     Dosage: TOTAL OF 3 INJECTIONS
     Route: 031
     Dates: start: 201504

REACTIONS (2)
  - Immune-mediated adverse reaction [Recovering/Resolving]
  - Endophthalmitis [Recovering/Resolving]

NARRATIVE: CASE EVENT DATE: 20180412
